FAERS Safety Report 13134568 (Version 1)
Quarter: 2017Q1

REPORT INFORMATION
  Report Type: Spontaneous
  Country: FR (occurrence: FR)
  Receive Date: 20170120
  Receipt Date: 20170120
  Transmission Date: 20170428
  Serious: Yes (Hospitalization, Other)
  Sender: FDA-Public Use
  Company Number: FR-PFIZER INC-2017019098

PATIENT
  Age: 22 Year
  Sex: Male

DRUGS (3)
  1. EFFEXOR LP [Suspect]
     Active Substance: VENLAFAXINE HYDROCHLORIDE
     Dosage: 1125 MG, SINGLE
     Route: 048
     Dates: start: 20161206, end: 20161206
  2. EFFEXOR LP [Suspect]
     Active Substance: VENLAFAXINE HYDROCHLORIDE
     Dosage: 2250 MG, SINGLE
     Route: 048
     Dates: start: 20161206, end: 20161206
  3. EFFEXOR LP [Suspect]
     Active Substance: VENLAFAXINE HYDROCHLORIDE
     Dosage: 1.5 DF, 1X/DAY,IN THE MORNING

REACTIONS (9)
  - Overdose [Unknown]
  - Generalised tonic-clonic seizure [Recovered/Resolved]
  - Tachycardia [Recovered/Resolved]
  - Joint dislocation [Recovering/Resolving]
  - Vomiting [Recovered/Resolved]
  - Serotonin syndrome [Recovered/Resolved]
  - Myalgia [Recovered/Resolved]
  - Stress [Unknown]
  - Impulse-control disorder [Unknown]

NARRATIVE: CASE EVENT DATE: 20161206
